FAERS Safety Report 14235183 (Version 3)
Quarter: 2019Q2

REPORT INFORMATION
  Report Type: Report from Study
  Country: None (occurrence: AR)
  Receive Date: 20171129
  Receipt Date: 20190520
  Transmission Date: 20190711
  Serious: Yes (Hospitalization, Other)
  Sender: FDA-Public Use
  Company Number: AR-ABBVIE-17K-007-2177339-00

PATIENT
  Age: 74 Year
  Sex: Female

DRUGS (3)
  1. HUMIRA [Suspect]
     Active Substance: ADALIMUMAB
     Indication: PSORIASIS
     Route: 058
     Dates: start: 20120101, end: 201711
  2. HUMIRA [Suspect]
     Active Substance: ADALIMUMAB
     Indication: PSORIASIS
     Route: 058
  3. ALPERTAN [Concomitant]
     Indication: BLOOD PRESSURE ABNORMAL

REACTIONS (7)
  - Hepatic pain [Recovering/Resolving]
  - Psoriasis [Recovered/Resolved]
  - Guillain-Barre syndrome [Recovering/Resolving]
  - Ovarian cyst [Unknown]
  - Hepatitis A [Recovered/Resolved]
  - Pneumonia [Recovered/Resolved]
  - Hepatitis A [Recovered/Resolved]

NARRATIVE: CASE EVENT DATE: 201711
